FAERS Safety Report 6279964-X (Version None)
Quarter: 2009Q3

REPORT INFORMATION
  Report Type: 
  Country: None (occurrence: None)
  Receive Date: 20090723
  Receipt Date: 20090317
  Transmission Date: 20100115
  Serious: No
  Sender: FDA-Public Use
  Company Number: US-AMGEN-KDL324817

PATIENT
  Sex: Male

DRUGS (3)
  1. PROCRIT [Suspect]
     Indication: PRE-EXISTING DISEASE
     Route: 058
     Dates: start: 20080601
  2. INTERFERON [Concomitant]
     Route: 058
     Dates: start: 20080601
  3. RIBAVIRIN [Concomitant]
     Route: 048
     Dates: start: 20080601

REACTIONS (1)
  - THERAPEUTIC RESPONSE DECREASED [None]
